FAERS Safety Report 17020912 (Version 1)
Quarter: 2019Q4

REPORT INFORMATION
  Report Type: Spontaneous
  Country: US (occurrence: US)
  Receive Date: 20191112
  Receipt Date: 20191112
  Transmission Date: 20200122
  Serious: No
  Sender: FDA-Public Use
  Company Number: US-FRESENIUS KABI-FK201912521

PATIENT
  Age: 25 Year
  Sex: Female
  Weight: 103.9 kg

DRUGS (5)
  1. DIPRIVAN [Suspect]
     Active Substance: PROPOFOL
     Route: 042
     Dates: start: 20191108, end: 20191108
  2. DIPRIVAN [Suspect]
     Active Substance: PROPOFOL
     Route: 042
     Dates: start: 20191108, end: 20191108
  3. DIPRIVAN [Suspect]
     Active Substance: PROPOFOL
     Route: 040
     Dates: start: 20191108, end: 20191108
  4. DIPRIVAN [Suspect]
     Active Substance: PROPOFOL
     Indication: ANAESTHESIA
     Route: 040
     Dates: start: 20191108, end: 20191108
  5. DIPRIVAN [Suspect]
     Active Substance: PROPOFOL
     Dosage: DECREASED
     Route: 042
     Dates: start: 20191108, end: 20191108

REACTIONS (2)
  - No adverse event [None]
  - Drug ineffective [Recovered/Resolved]

NARRATIVE: CASE EVENT DATE: 20191108
